FAERS Safety Report 9140203 (Version 4)
Quarter: 2013Q4

REPORT INFORMATION
  Report Type: Report from Study
  Country: BR (occurrence: BR)
  Receive Date: 20130305
  Receipt Date: 20131022
  Transmission Date: 20140711
  Serious: Yes (Other)
  Sender: FDA-Public Use
  Company Number: PHHY2012BR047202

PATIENT
  Sex: Female

DRUGS (3)
  1. GILENYA [Suspect]
     Indication: MULTIPLE SCLEROSIS
     Dosage: 0.5 MG, QD
     Route: 048
  2. GILENYA [Suspect]
     Dosage: 2 DF, QD
     Route: 048
  3. CITALOPRAM [Concomitant]
     Indication: DEPRESSION
     Dosage: 1 DF, QD
     Route: 048

REACTIONS (1)
  - Acne [Unknown]
